FAERS Safety Report 13416971 (Version 2)
Quarter: 2017Q2

REPORT INFORMATION
  Report Type: Spontaneous
  Country: DE (occurrence: DE)
  Receive Date: 20170406
  Receipt Date: 20170602
  Transmission Date: 20170830
  Serious: Yes (Hospitalization)
  Sender: FDA-Public Use
  Company Number: DE-TEVA-755855GER

PATIENT
  Age: 23 Year
  Sex: Female
  Weight: 72 kg

DRUGS (5)
  1. METAMIZOLE [Suspect]
     Active Substance: METAMIZOLE
     Indication: PAIN PROPHYLAXIS
     Dosage: 1G SHORT INFUSION
     Route: 050
  2. FENTANYL. [Suspect]
     Active Substance: FENTANYL
     Indication: GENERAL ANAESTHESIA
     Dosage: 0.2MG
     Route: 042
  3. PROPOFOL. [Suspect]
     Active Substance: PROPOFOL
     Dosage: 100MG
     Route: 065
  4. PROPOFOL. [Suspect]
     Active Substance: PROPOFOL
     Indication: GENERAL ANAESTHESIA
     Dosage: 200MG
     Route: 042
  5. PROPOFOL. [Suspect]
     Active Substance: PROPOFOL
     Dosage: 6 MG/KG/H PERFUSOR
     Route: 042

REACTIONS (1)
  - Anticholinergic syndrome [Recovered/Resolved]
